FAERS Safety Report 16308700 (Version 1)
Quarter: 2019Q2

REPORT INFORMATION
  Report Type: Spontaneous
  Country: US (occurrence: US)
  Receive Date: 20190514
  Receipt Date: 20190514
  Transmission Date: 20190711
  Serious: No
  Sender: FDA-Public Use
  Company Number: US-HORIZON-VIM-0220-2019

PATIENT
  Age: 60 Year
  Sex: Female

DRUGS (1)
  1. VIMOVO [Suspect]
     Active Substance: ESOMEPRAZOLE MAGNESIUM\NAPROXEN
     Indication: OSTEOARTHRITIS
     Dosage: TWICE DAILY AS NEEDED
     Route: 048
     Dates: start: 20190314

REACTIONS (2)
  - Pain in extremity [Unknown]
  - Off label use [Unknown]
